FAERS Safety Report 8672633 (Version 5)
Quarter: 2012Q4

REPORT INFORMATION
  Report Type: 
  Country: JP (occurrence: JP)
  Receive Date: 20120719
  Receipt Date: 20121022
  Transmission Date: 20130627
  Serious: Yes (Hospitalization)
  Sender: FDA-Public Use
  Company Number: JP-PFIZER INC-2012171050

PATIENT
  Age: 64 Year
  Sex: Male
  Weight: 62 kg

DRUGS (13)
  1. LYRICA [Suspect]
     Indication: NEURALGIA
     Dosage: 75 mg, 3x/day
     Route: 048
     Dates: start: 20101206, end: 20120627
  2. CELECOX [Suspect]
     Indication: PAIN
     Dosage: 100 mg, 2x/day
     Route: 048
     Dates: start: 20100818, end: 20120627
  3. DEPAS [Suspect]
     Indication: ANXIETY
     Dosage: 1 mg, 3x/day
     Route: 048
     Dates: start: 20080428, end: 20120627
  4. BLOPRESS [Suspect]
     Indication: HYPERTENSION
     Dosage: 8 mg, 1x/day
     Route: 048
     Dates: start: 20080501, end: 20120627
  5. JANUVIA [Concomitant]
     Indication: DIABETES MELLITUS
     Dosage: 100 mg, 1x/day
     Route: 048
     Dates: end: 20120627
  6. NORVASC [Concomitant]
     Indication: HYPERTENSION
     Dosage: 5 mg, 2x/day
     Route: 048
     Dates: end: 20120627
  7. METGLUCO [Concomitant]
     Indication: DIABETES MELLITUS
     Dosage: 250 mg, 2x/day
     Route: 048
     Dates: end: 20120627
  8. MYSLEE [Concomitant]
     Indication: INSOMNIA
     Dosage: 5 mg, 1x/day
     Route: 048
     Dates: end: 20120627
  9. AMARYL [Concomitant]
     Indication: DIABETES MELLITUS
     Dosage: 1 mg, 1x/day
     Route: 048
     Dates: end: 20120627
  10. BIOFERMIN [Concomitant]
     Indication: ABDOMINAL DISCOMFORT
     Dosage: 12 mg, 3x/day
     Route: 048
     Dates: start: 20091202, end: 20120627
  11. TRANCOLON [Concomitant]
     Indication: ABDOMINAL DISCOMFORT
     Dosage: 7.5 mg, 3x/day
     Dates: start: 20110911, end: 20120627
  12. OMEPRAL [Concomitant]
     Indication: GASTRITIS
     Dosage: 20 mg, 1x/day
     Route: 048
     Dates: start: 20080611, end: 20120627
  13. FERROMIA [Concomitant]
     Indication: ANAEMIA
     Dosage: 50 mg, 1x/day
     Route: 048
     Dates: start: 20120120, end: 20120627

REACTIONS (1)
  - Erythema multiforme [Recovered/Resolved]
